FAERS Safety Report 5941441-0 (Version None)
Quarter: 2008Q4

REPORT INFORMATION
  Report Type: 
  Country: None (occurrence: None)
  Receive Date: 20081103
  Receipt Date: 20081103
  Transmission Date: 20090506
  Serious: Yes (Other)
  Sender: FDA-Public Use
  Company Number: None

PATIENT
  Age: 9 Year
  Sex: Male
  Weight: 26.3086 kg

DRUGS (1)
  1. ABILIFY [Suspect]
     Indication: BIPOLAR DISORDER
     Dosage: 10MG 1X A DAY
     Dates: start: 20081027, end: 20081103

REACTIONS (3)
  - MUSCLE SPASMS [None]
  - PAIN [None]
  - TONGUE DISORDER [None]
